FAERS Safety Report 5025021-X (Version None)
Quarter: 2006Q2

REPORT INFORMATION
  Report Type: 
  Country: None (occurrence: None)
  Receive Date: 20060426
  Receipt Date: 20060224
  Transmission Date: 20061013
  Serious: Yes (Other)
  Sender: FDA-Public Use
  Company Number: 2006028593

PATIENT
  Age: 50 Year
  Sex: Female
  Weight: 86.1834 kg

DRUGS (5)
  1. LYRICA [Suspect]
     Indication: NEURALGIA
     Dosage: 2 IN 1 D, ORAL
     Route: 048
     Dates: start: 20060101
  2. NEURONTIN [Suspect]
     Indication: NEURALGIA
     Dosage: 600 MG (2 IN 1 D) , ORAL
     Route: 048
  3. HYDROCHLOROTHIAZIDE [Concomitant]
  4. CENESTIN [Concomitant]
  5. PROTONIX [Concomitant]

REACTIONS (4)
  - BREAST TENDERNESS [None]
  - DRUG INEFFECTIVE [None]
  - DRY MOUTH [None]
  - OEDEMA PERIPHERAL [None]
